FAERS Safety Report 7417057-6 (Version None)
Quarter: 2011Q2

REPORT INFORMATION
  Report Type: 
  Country: None (occurrence: None)
  Receive Date: 20110415
  Receipt Date: 20091122
  Transmission Date: 20111010
  Serious: Yes (Death, Hospitalization, Other)
  Sender: FDA-Public Use
  Company Number: US-BAYER-200940033NA

PATIENT
  Age: 72 Year
  Sex: Male
  Weight: 96.145 kg

DRUGS (27)
  1. ALTACE [Concomitant]
     Dosage: 10 MG, QD
     Route: 048
  2. TRASYLOL [Suspect]
     Indication: CORONARY ARTERY BYPASS
     Dosage: 200 ML PRIME
     Route: 042
     Dates: start: 20050826, end: 20050826
  3. VYTORIN [Concomitant]
     Dosage: 10/40 MG DAILY
     Route: 048
  4. AVANDIA [Concomitant]
     Dosage: 4 G, QD
     Route: 048
  5. HEPARIN [Concomitant]
     Dosage: 5000 UNK, UNK
     Route: 058
     Dates: start: 20050521
  6. LIDOCAINE [Concomitant]
     Dosage: 100 MG, UNK
     Route: 042
     Dates: start: 20020826, end: 20020826
  7. EPINEPHRINE [Concomitant]
     Dosage: UNK
     Route: 042
     Dates: start: 20050826
  8. RED BLOOD CELLS [Concomitant]
     Dosage: 2 U, UNK
     Route: 042
     Dates: start: 20050826, end: 20050826
  9. NORVASC [Concomitant]
     Dosage: 10 MG, QD
     Route: 048
  10. PLAVIX [Concomitant]
     Dosage: 75 MG, QD
     Route: 048
  11. LASIX [Concomitant]
     Dosage: 40 MG, QD
     Route: 048
  12. ANCEF [Concomitant]
     Dosage: 1 G, UNK
     Route: 042
     Dates: start: 20050826, end: 20050826
  13. TRASYLOL [Suspect]
     Dosage: 50 CC PER HOUR
     Route: 041
     Dates: start: 20050826, end: 20050826
  14. ASPIRIN [Concomitant]
     Dosage: 325 MG, QD
     Route: 048
  15. TOPROL-XL [Concomitant]
     Dosage: 200 MG, QD
     Route: 048
  16. CLONIDINE [Concomitant]
     Dosage: 0.2 MG, BID
     Route: 048
  17. HEPARIN [Concomitant]
     Dosage: UNK
  18. NITROGLYCERIN [Concomitant]
     Dosage: UNK
     Route: 042
     Dates: start: 20050826
  19. CARDENE [Concomitant]
     Dosage: UNK
     Route: 042
     Dates: start: 20050826
  20. LANTUS [Concomitant]
     Dosage: 15 U, HS
     Route: 058
     Dates: start: 20050521
  21. DOBUTAMINE HCL [Concomitant]
     Dosage: UNK
     Route: 042
     Dates: start: 20020614, end: 20020614
  22. BREVIBLOC [Concomitant]
     Dosage: 100 MG PRIME
     Dates: start: 20050826
  23. ROMAZICON [Concomitant]
     Indication: SEDATION
     Dosage: UNK
     Dates: start: 20050830, end: 20050830
  24. NARCAN [Concomitant]
     Indication: SEDATION
     Dosage: 0.2 MG
     Route: 042
     Dates: start: 20050830, end: 20050830
  25. NITROGLYCERIN [Concomitant]
     Dosage: 0.4 MG, PRN
     Route: 060
  26. PROTAMINE SULFATE [Concomitant]
     Dosage: 10MG/ML - 50 MG
     Route: 042
     Dates: start: 20050826, end: 20050826
  27. MILRINONE [Concomitant]
     Dosage: .375 MCG/KG/MINUTE
     Route: 042
     Dates: start: 20050826

REACTIONS (13)
  - DEATH [None]
  - STRESS [None]
  - INJURY [None]
  - RENAL INJURY [None]
  - ANHEDONIA [None]
  - UNEVALUABLE EVENT [None]
  - RENAL FAILURE [None]
  - PAIN [None]
  - RENAL IMPAIRMENT [None]
  - EMOTIONAL DISTRESS [None]
  - ANXIETY [None]
  - FEAR [None]
  - MULTI-ORGAN FAILURE [None]
